FAERS Safety Report 24110982 (Version 1)
Quarter: 2024Q3

REPORT INFORMATION
  Report Type: Spontaneous
  Country: US (occurrence: US)
  Receive Date: 20240718
  Receipt Date: 20240718
  Transmission Date: 20241016
  Serious: Yes (Hospitalization)
  Sender: CALLIDITAS THERAPEUTICS
  Company Number: US-Calliditas-2024CAL01286

PATIENT
  Age: 37 Year
  Sex: Female
  Weight: 50.7 kg

DRUGS (1)
  1. TARPEYO [Suspect]
     Active Substance: BUDESONIDE
     Indication: IgA nephropathy
     Route: 048
     Dates: start: 20240520

REACTIONS (5)
  - Intestinal obstruction [Unknown]
  - Ileus [Unknown]
  - Vomiting [Unknown]
  - Product dose omission issue [Unknown]
  - Haemoglobin decreased [Unknown]
